FAERS Safety Report 17388067 (Version 1)
Quarter: 2020Q1

REPORT INFORMATION
  Report Type: Spontaneous
  Country: US (occurrence: US)
  Receive Date: 20200207
  Receipt Date: 20200207
  Transmission Date: 20200409
  Serious: Yes (Hospitalization)
  Sender: FDA-Public Use
  Company Number: US-ROCHE-2537281

PATIENT
  Age: 45 Year
  Sex: Female

DRUGS (8)
  1. ACTEMRA [Suspect]
     Active Substance: TOCILIZUMAB
     Indication: RHEUMATOID ARTHRITIS
     Route: 058
  2. SYNTHROID [Concomitant]
     Active Substance: LEVOTHYROXINE SODIUM
  3. TRAMADOL HCL [Concomitant]
     Active Substance: TRAMADOL HYDROCHLORIDE
  4. PREDNISONE. [Concomitant]
     Active Substance: PREDNISONE
  5. LIOTHYRONINE [Concomitant]
     Active Substance: LIOTHYRONINE
  6. NAPROXEN. [Concomitant]
     Active Substance: NAPROXEN
  7. ONDANSETRON [Concomitant]
     Active Substance: ONDANSETRON
  8. MELOXICAM. [Concomitant]
     Active Substance: MELOXICAM

REACTIONS (1)
  - Rotator cuff repair [Unknown]

NARRATIVE: CASE EVENT DATE: 20191231
